FAERS Safety Report 7551851-6 (Version None)
Quarter: 2011Q2

REPORT INFORMATION
  Report Type: 
  Country: None (occurrence: None)
  Receive Date: 20110616
  Receipt Date: 20110607
  Transmission Date: 20111010
  Serious: Yes (Hospitalization)
  Sender: FDA-Public Use
  Company Number: CN-ASTRAZENECA-2011SE34732

PATIENT
  Age: 60 Year
  Sex: Female
  Weight: 75 kg

DRUGS (3)
  1. AMLODIPINE BESYLATE [Concomitant]
     Indication: HYPERTENSION
  2. METOPROLOL SUCCINATE [Suspect]
     Route: 048
     Dates: start: 20110428
  3. METOPROLOL SUCCINATE [Suspect]
     Indication: HYPERTENSION
     Route: 048
     Dates: start: 20110428

REACTIONS (4)
  - DIZZINESS [None]
  - CEREBROVASCULAR INSUFFICIENCY [None]
  - BALANCE DISORDER [None]
  - TINNITUS [None]
